FAERS Safety Report 24961415 (Version 2)
Quarter: 2025Q4

REPORT INFORMATION
  Report Type: Spontaneous
  Country: EU (occurrence: EU)
  Receive Date: 20250212
  Receipt Date: 20251030
  Transmission Date: 20260117
  Serious: Yes (Hospitalization)
  Sender: SANDOZ
  Company Number: None

PATIENT
  Age: 46 Year
  Sex: Female
  Weight: 43.6 kg

DRUGS (15)
  1. BUPRENORPHINE [Suspect]
     Active Substance: BUPRENORPHINE
     Indication: Drug withdrawal syndrome
     Dosage: 1 CPR ? 8H, 12H, 20H, (BUPRENORPHINE VIATRIS 8 MG, COMPRIM? SUBLINGUAL)
     Route: 048
     Dates: start: 20250115, end: 20250129
  2. BUPRENORPHINE [Suspect]
     Active Substance: BUPRENORPHINE
     Indication: Drug withdrawal syndrome
     Dosage: 1 CPR ? 8H, 12H, 20H
     Route: 048
     Dates: start: 20250121
  3. CREON [Suspect]
     Active Substance: PANCRELIPASE AMYLASE\PANCRELIPASE LIPASE\PANCRELIPASE PROTEASE
     Indication: Pancreatic failure
     Dosage: UNK, QD
     Route: 048
     Dates: start: 20250113, end: 20250130
  4. FLUOXETINE HYDROCHLORIDE [Suspect]
     Active Substance: FLUOXETINE HYDROCHLORIDE
     Indication: Depression
     Dosage: 1 CPR LE MATIN, COMPRESSED DISPERSIBLE BREAKABLE
     Route: 048
     Dates: start: 20250120, end: 20250130
  5. HYDROXYZINE [Suspect]
     Active Substance: HYDROXYZINE HYDROCHLORIDE
     Indication: Insomnia
     Dosage: 1 CPR AU COUCHER
     Route: 048
     Dates: start: 20250122, end: 20250129
  6. IRBESARTAN [Suspect]
     Active Substance: IRBESARTAN
     Indication: Vitamin D deficiency
     Dosage: 1 CPR LE MATIN
     Route: 048
     Dates: start: 20250114, end: 20250130
  7. AMITRIPTYLINE HYDROCHLORIDE [Suspect]
     Active Substance: AMITRIPTYLINE HYDROCHLORIDE
     Indication: Product used for unknown indication
     Dosage: 10 GOUTTES LE SOIR
     Route: 048
     Dates: start: 20250119, end: 20250129
  8. ACETAMINOPHEN [Suspect]
     Active Substance: ACETAMINOPHEN
     Dosage: 1G/J, QD
     Route: 048
     Dates: start: 20250114, end: 20250114
  9. ACETAMINOPHEN [Suspect]
     Active Substance: ACETAMINOPHEN
     Dosage: 1G/J, QD
     Route: 048
     Dates: start: 20250115, end: 20250115
  10. ACETAMINOPHEN [Suspect]
     Active Substance: ACETAMINOPHEN
     Dosage: 1G/J, QD
     Route: 048
     Dates: start: 20250120, end: 20250122
  11. ACETAMINOPHEN [Suspect]
     Active Substance: ACETAMINOPHEN
     Indication: Pain
     Dosage: +1G LES 14 ET 15/01
     Route: 048
     Dates: start: 20250120, end: 20250122
  12. PANTOPRAZOLE SODIUM [Suspect]
     Active Substance: PANTOPRAZOLE SODIUM
     Dosage: 1 DF, QD, 1 CPR ? JEUN
     Route: 048
     Dates: start: 20250228, end: 20250228
  13. PANTOPRAZOLE SODIUM [Suspect]
     Active Substance: PANTOPRAZOLE SODIUM
     Indication: Gastrooesophageal reflux disease
     Dosage: 1 CPR ? JEUN
     Route: 048
     Dates: start: 20250127
  14. CHOLECALCIFEROL [Concomitant]
     Active Substance: CHOLECALCIFEROL
     Indication: Vitamin D deficiency
     Dosage: 1 AMPOULE MIDI, 1 JOUR SUR 7, 50000 UI, ORAL SOLUTION IN BULB
     Route: 048
     Dates: start: 20250118, end: 20250118
  15. CHOLECALCIFEROL [Concomitant]
     Active Substance: CHOLECALCIFEROL
     Dosage: 1 AMPOULE MIDI, 1 JOUR SUR 7, 50000 UI, ORAL SOLUTION IN BULB
     Route: 048
     Dates: start: 20250125, end: 20250125

REACTIONS (2)
  - Hepatitis cholestatic [Not Recovered/Not Resolved]
  - Cholestasis [Not Recovered/Not Resolved]

NARRATIVE: CASE EVENT DATE: 20250127
